FAERS Safety Report 6509032-0 (Version None)
Quarter: 2009Q4

REPORT INFORMATION
  Report Type: 
  Country: None (occurrence: None)
  Receive Date: 20091221
  Receipt Date: 20091019
  Transmission Date: 20100525
  Serious: No
  Sender: FDA-Public Use
  Company Number: US-ASTRAZENECA-2009SE10892

PATIENT
  Sex: Male
  Weight: 84.4 kg

DRUGS (6)
  1. CRESTOR [Suspect]
     Indication: BLOOD CHOLESTEROL ABNORMAL
     Route: 048
     Dates: start: 20080801, end: 20090501
  2. CRESTOR [Suspect]
     Route: 048
     Dates: start: 20090501, end: 20090704
  3. INDOMETHACIN [Concomitant]
  4. LISINOPRIL [Concomitant]
  5. FISH OIL [Concomitant]
  6. VITAMIN B COMPLEX CAP [Concomitant]

REACTIONS (4)
  - ARTHRALGIA [None]
  - MUSCULOSKELETAL STIFFNESS [None]
  - OEDEMA PERIPHERAL [None]
  - SYNOVITIS [None]
